FAERS Safety Report 8077674-X (Version None)
Quarter: 2012Q1

REPORT INFORMATION
  Report Type: 
  Country: None (occurrence: None)
  Receive Date: 20120127
  Receipt Date: 20120123
  Transmission Date: 20120608
  Serious: Yes (Hospitalization)
  Sender: FDA-Public Use
  Company Number: TW-PFIZER INC-2009214898

PATIENT
  Age: 57 Year
  Sex: Male
  Weight: 67 kg

DRUGS (6)
  1. TRAMADOL [Concomitant]
     Indication: BONE PAIN
     Dosage: UNK
     Dates: start: 20090413
  2. MORPHINE [Concomitant]
     Indication: BONE PAIN
     Dosage: UNK
     Dates: start: 20090430
  3. BISACODYL [Concomitant]
     Indication: CONSTIPATION
     Dosage: UNK
     Dates: start: 20090423
  4. SUNITINIB MALATE [Suspect]
     Indication: PROSTATE CANCER
     Dosage: 37.5 MG, 1X/DAY
     Route: 048
     Dates: start: 20090430, end: 20090511
  5. PREDNISOLONE [Concomitant]
     Dosage: PRE-STUDY
     Dates: start: 20090212, end: 20090429
  6. PREDNISOLONE [Suspect]
     Indication: PROSTATE CANCER
     Dosage: 5 MG, 2X/DAY
     Route: 048
     Dates: start: 20090430

REACTIONS (4)
  - MALAISE [None]
  - HEPATITIS CHOLESTATIC [None]
  - DYSPNOEA [None]
  - ASPARTATE AMINOTRANSFERASE INCREASED [None]
